FAERS Safety Report 9830527 (Version 2)
Quarter: 2014Q1

REPORT INFORMATION
  Report Type: Report from Study
  Country: CZ (occurrence: CZ)
  Receive Date: 20140120
  Receipt Date: 20140120
  Transmission Date: 20141002
  Serious: Yes (Other)
  Sender: FDA-Public Use
  Company Number: CZ-BRISTOL-MYERS SQUIBB COMPANY-15654106

PATIENT
  Age: 70 Year
  Sex: Male

DRUGS (8)
  1. IPILIMUMAB [Suspect]
     Indication: MALIGNANT MELANOMA
     Route: 042
     Dates: start: 20110217, end: 20110310
  2. FUROSEMIDE [Concomitant]
     Dates: start: 20081001
  3. OMEPRAZOLUM [Concomitant]
     Indication: PROPHYLAXIS
     Dates: start: 20101001
  4. WARFARIN [Concomitant]
     Indication: ANTICOAGULANT THERAPY
     Dates: start: 20090401
  5. THIAMAZOLE [Concomitant]
     Dates: start: 20110310
  6. TRANDOLAPRIL [Concomitant]
     Indication: HYPERTENSION
  7. ALLOPURINOL [Concomitant]
     Indication: HYPERURICAEMIA
  8. LOSARTAN [Concomitant]
     Indication: HYPERTENSION

REACTIONS (3)
  - Alanine aminotransferase increased [Recovered/Resolved]
  - Aspartate aminotransferase increased [Recovered/Resolved]
  - Lipase increased [Recovered/Resolved]
